FAERS Safety Report 16232864 (Version 2)
Quarter: 2019Q2

REPORT INFORMATION
  Report Type: Spontaneous
  Country: US (occurrence: US)
  Receive Date: 20190424
  Receipt Date: 20190430
  Transmission Date: 20190711
  Serious: Yes (Hospitalization)
  Sender: FDA-Public Use
  Company Number: US-ABBVIE-19K-163-2755536-00

PATIENT
  Sex: Male

DRUGS (4)
  1. MAVYRET [Suspect]
     Active Substance: GLECAPREVIR\PIBRENTASVIR
     Indication: HEPATITIS C
     Dosage: 8 WEEKS DURATION
     Route: 048
     Dates: start: 201903
  2. LACTULOSE. [Concomitant]
     Active Substance: LACTULOSE
     Indication: ENCEPHALOPATHY
  3. LACTULOSE. [Concomitant]
     Active Substance: LACTULOSE
     Dosage: LACTULOSE WAS RESUMED
  4. MAVYRET [Suspect]
     Active Substance: GLECAPREVIR\PIBRENTASVIR
     Indication: CHRONIC HEPATITIS C

REACTIONS (3)
  - Confusional state [Unknown]
  - Child-Pugh-Turcotte score increased [Unknown]
  - Encephalopathy [Unknown]

NARRATIVE: CASE EVENT DATE: 2019
